FAERS Safety Report 10503782 (Version 1)
Quarter: 2014Q4

REPORT INFORMATION
  Report Type: Spontaneous
  Country: US (occurrence: None)
  Receive Date: 20141007
  Receipt Date: 20141007
  Transmission Date: 20150528
  Serious: No
  Sender: FDA-Public Use
  Company Number: None

PATIENT
  Age: 63 Year
  Sex: Male
  Weight: 66.8 kg

DRUGS (2)
  1. CEFEPIME [Suspect]
     Active Substance: CEFEPIME\CEFEPIME HYDROCHLORIDE
     Indication: FUSOBACTERIUM INFECTION
     Route: 042
     Dates: start: 20140317, end: 20140326
  2. METRONIDAZOLE. [Suspect]
     Active Substance: METRONIDAZOLE
     Indication: FUSOBACTERIUM INFECTION
     Route: 048
     Dates: start: 20140317, end: 20140326

REACTIONS (2)
  - Seizure [None]
  - Tremor [None]

NARRATIVE: CASE EVENT DATE: 20140405
